FAERS Safety Report 24358320 (Version 1)
Quarter: 2024Q3

REPORT INFORMATION
  Report Type: Spontaneous
  Country: US (occurrence: US)
  Receive Date: 20240924
  Receipt Date: 20240924
  Transmission Date: 20241017
  Serious: No
  Sender: TEVA
  Company Number: US-TEVA-VS-3240501

PATIENT
  Sex: Female

DRUGS (1)
  1. CLONAZEPAM [Suspect]
     Active Substance: CLONAZEPAM
     Indication: Product used for unknown indication
     Route: 065

REACTIONS (6)
  - Feeling abnormal [Unknown]
  - Emergency care [Unknown]
  - Sleep disorder [Unknown]
  - Product dispensing error [Unknown]
  - Adverse drug reaction [Unknown]
  - Hypersensitivity [Unknown]
